FAERS Safety Report 4718350-8 (Version None)
Quarter: 2005Q3

REPORT INFORMATION
  Report Type: 
  Country: None (occurrence: None)
  Receive Date: 20050720
  Receipt Date: 20050711
  Transmission Date: 20060218
  Serious: Yes (Disabling, Other)
  Sender: FDA-Public Use
  Company Number: JP-JNJFOC-20050501900

PATIENT
  Age: 50 Year
  Sex: Female

DRUGS (1)
  1. TARAVID [Suspect]
     Dosage: 2 TABLETS A DAY
     Route: 048
     Dates: start: 20050101, end: 20050101

REACTIONS (1)
  - ANOSMIA [None]
